FAERS Safety Report 12346845 (Version 1)
Quarter: 2016Q2

REPORT INFORMATION
  Report Type: Report from Study
  Country: US (occurrence: US)
  Receive Date: 20160509
  Receipt Date: 20160509
  Transmission Date: 20160815
  Serious: Yes (Other)
  Sender: FDA-Public Use
  Company Number: PHEH2014US013485

PATIENT
  Age: 28 Year
  Sex: Female

DRUGS (1)
  1. GLEEVEC [Suspect]
     Active Substance: IMATINIB MESYLATE
     Indication: CHRONIC MYELOID LEUKAEMIA
     Dosage: 100 MG, QID
     Route: 048

REACTIONS (16)
  - Dizziness exertional [Unknown]
  - Headache [Unknown]
  - Chronic myeloid leukaemia [Unknown]
  - Abdominal pain upper [Unknown]
  - Leukaemia recurrent [Unknown]
  - Weight increased [Unknown]
  - Decreased appetite [Unknown]
  - Chest pain [Unknown]
  - Nodule [Unknown]
  - Pollakiuria [Unknown]
  - Palpitations [Unknown]
  - Dizziness [Unknown]
  - Rash [Unknown]
  - Malaise [Unknown]
  - Cytogenetic analysis abnormal [Unknown]
  - Maternal exposure during pregnancy [Unknown]

NARRATIVE: CASE EVENT DATE: 20140525
